FAERS Safety Report 10650239 (Version 1)
Quarter: 2014Q4

REPORT INFORMATION
  Report Type: Spontaneous
  Country: ES (occurrence: ES)
  Receive Date: 20141212
  Receipt Date: 20141212
  Transmission Date: 20150529
  Serious: Yes (Other)
  Sender: FDA-Public Use
  Company Number: ES-GLAXOSMITHKLINE-ES2014031210

PATIENT

DRUGS (1)
  1. VOTRIENT [Suspect]
     Active Substance: PAZOPANIB HYDROCHLORIDE
     Indication: LEIOMYOSARCOMA
     Route: 048
     Dates: start: 20140521, end: 20140610

REACTIONS (2)
  - Asthenia [Recovered/Resolved]
  - Hypertransaminasaemia [Unknown]

NARRATIVE: CASE EVENT DATE: 20140610
